FAERS Safety Report 6335531-0 (Version None)
Quarter: 2009Q3

REPORT INFORMATION
  Report Type: 
  Country: None (occurrence: None)
  Receive Date: 20090831
  Receipt Date: 20090825
  Transmission Date: 20100115
  Serious: No
  Sender: FDA-Public Use
  Company Number: US-B.I. PHARMACEUTICALS,INC./RIDGEFIELD-2009-BP-10047BP

PATIENT
  Age: 67 Year
  Sex: Male

DRUGS (7)
  1. ATROVENT HFA [Suspect]
     Indication: EMPHYSEMA
     Dosage: 8 PUF
     Route: 055
  2. SPIRIVA [Suspect]
     Indication: EMPHYSEMA
     Dosage: 18 MCG
     Route: 055
     Dates: start: 20070801
  3. ASMANEX TWISTHALER [Concomitant]
     Indication: EMPHYSEMA
     Route: 055
  4. ALBUTEROL [Concomitant]
     Indication: EMPHYSEMA
     Route: 055
  5. METOPROLOL [Concomitant]
     Indication: HYPERTENSION
     Dosage: 12.5 MG
     Route: 048
  6. LISINOPRIL [Concomitant]
     Indication: HYPERTENSION
     Dosage: 40 MG
     Route: 048
  7. PRILOSEC [Concomitant]
     Indication: GASTRITIS
     Dosage: 20 MG
     Route: 048

REACTIONS (3)
  - DENTAL CARIES [None]
  - DRY MOUTH [None]
  - DYSPHONIA [None]
